FAERS Safety Report 6966670 (Version 2)
Quarter: 2019Q1

REPORT INFORMATION
  Report Type: Spontaneous
  Country: US (occurrence: US)
  Receive Date: 20090410
  Receipt Date: 20190301
  Transmission Date: 20190418
  Serious: No
  Sender: FDA-Public Use
  Company Number: US-ASTRAZENECA-2009UW01105

PATIENT
  Sex: Male

DRUGS (1)
  1. TENORMIN [Suspect]
     Active Substance: ATENOLOL
     Indication: MITRAL VALVE DISEASE
     Route: 048

REACTIONS (1)
  - Condition aggravated [Unknown]
